FAERS Safety Report 25591274 (Version 4)
Quarter: 2025Q3

REPORT INFORMATION
  Report Type: Spontaneous
  Country: US (occurrence: US)
  Receive Date: 20250722
  Receipt Date: 20250827
  Transmission Date: 20251020
  Serious: Yes (Other)
  Sender: SANOFI AVENTIS
  Company Number: US-SA-2025SA210237

PATIENT
  Age: 21 Year
  Sex: Female

DRUGS (19)
  1. DUPIXENT [Suspect]
     Active Substance: DUPILUMAB
     Indication: Dermatitis atopic
     Route: 058
     Dates: start: 20250429, end: 20250429
  2. DUPIXENT [Suspect]
     Active Substance: DUPILUMAB
     Dosage: 300 MG, QOW
     Route: 058
     Dates: start: 202505, end: 20250730
  3. DUPIXENT [Suspect]
     Active Substance: DUPILUMAB
     Dosage: 300 MG, QOW
     Dates: start: 2025, end: 20250814
  4. DOXYCYCLINE [Concomitant]
     Active Substance: DOXYCYCLINE
     Indication: Hidradenitis
  5. CLINDAMYCIN [Concomitant]
     Active Substance: CLINDAMYCIN
     Indication: Hidradenitis
  6. CLOBETASOL PROPIONATE [Concomitant]
     Active Substance: CLOBETASOL PROPIONATE
     Indication: Eczema
     Dosage: 1 APPLICATION, EXTERNALLY, TWICE A DAY
  7. CLOBETASOL PROPIONATE [Concomitant]
     Active Substance: CLOBETASOL PROPIONATE
     Indication: Dyshidrotic eczema
  8. VTAMA [Concomitant]
     Active Substance: TAPINAROF
     Indication: Eczema
  9. MUPIROCIN [Concomitant]
     Active Substance: MUPIROCIN
     Indication: Hidradenitis
  10. TACROLIMUS [Concomitant]
     Active Substance: TACROLIMUS
     Indication: Eczema
  11. BETAMETHASONE [Concomitant]
     Active Substance: BETAMETHASONE
     Indication: Eczema
  12. VTAMA [Concomitant]
     Active Substance: TAPINAROF
     Indication: Dyshidrotic eczema
     Dosage: 1 % CREAM 1 APPLICATION EXTERNALLY ONCE A DAY
  13. TRIAMCINOLONE [Concomitant]
     Active Substance: TRIAMCINOLONE
  14. ELIDEL [Concomitant]
     Active Substance: PIMECROLIMUS
  15. PROTOPIC [Concomitant]
     Active Substance: TACROLIMUS
  16. DOVONEX [Concomitant]
     Active Substance: CALCIPOTRIENE
  17. ZORYVE [Concomitant]
     Active Substance: ROFLUMILAST
     Indication: Eczema
     Dosage: ZORYVE 0.15 % CREAM 1 APPLICATION EXTERNALLY ONCE A DAY
  18. HYDROCORTISONE [Concomitant]
     Active Substance: HYDROCORTISONE
  19. EBGLYSS [LEBRIKIZUMAB] [Concomitant]

REACTIONS (5)
  - Syncope [Recovered/Resolved]
  - Fear of injection [Unknown]
  - Hyperhidrosis [Recovering/Resolving]
  - Intertrigo [Unknown]
  - Rash pruritic [Unknown]

NARRATIVE: CASE EVENT DATE: 20250101
